FAERS Safety Report 12554281 (Version 1)
Quarter: 2016Q3

REPORT INFORMATION
  Report Type: Spontaneous
  Country: RU (occurrence: RU)
  Receive Date: 20160713
  Receipt Date: 20160713
  Transmission Date: 20161109
  Serious: Yes (Hospitalization, Other)
  Sender: FDA-Public Use
  Company Number: RU-HQ SPECIALTY-RU-2016INT000466

PATIENT
  Age: 46 Year
  Sex: Female

DRUGS (5)
  1. DOXORUBICIN [Suspect]
     Active Substance: DOXORUBICIN
     Indication: BREAST CANCER
     Dosage: 6 COURSES, UNK
     Dates: start: 20121108, end: 201302
  2. TRASTUZUMAB [Suspect]
     Active Substance: TRASTUZUMAB
     Indication: BREAST CANCER
     Dosage: UNK, MONTHLY
     Dates: start: 20130514, end: 20140109
  3. PACLITAXEL. [Suspect]
     Active Substance: PACLITAXEL
     Indication: BREAST CANCER
     Dosage: 6 COURSES, UNK
     Dates: end: 20140729
  4. TRASTUZUMAB [Suspect]
     Active Substance: TRASTUZUMAB
     Dosage: UNK
     Dates: end: 20140729
  5. DOXORUBICIN [Suspect]
     Active Substance: DOXORUBICIN
     Dosage: 2 COURSES OF 280 MG, UNK
     Dates: start: 201402, end: 201403

REACTIONS (7)
  - Cardiac failure chronic [Unknown]
  - Pericardial effusion [Unknown]
  - Cytotoxic cardiomyopathy [Unknown]
  - Asthenia [Unknown]
  - Dyspnoea [Unknown]
  - Echocardiogram abnormal [Unknown]
  - Hydrothorax [Unknown]
